FAERS Safety Report 17958530 (Version 3)
Quarter: 2020Q3

REPORT INFORMATION
  Report Type: Spontaneous
  Country: IT (occurrence: IT)
  Receive Date: 20200629
  Receipt Date: 20200820
  Transmission Date: 20201103
  Serious: Yes (Life-Threatening, Hospitalization, Other)
  Sender: FDA-Public Use
  Company Number: NVSC2020IT181209

PATIENT
  Age: 90 Year
  Sex: Male

DRUGS (5)
  1. ALLOPURINOL. [Suspect]
     Active Substance: ALLOPURINOL
     Indication: HYPERURICAEMIA
     Dosage: UNK
     Route: 065
  2. SILODOSIN. [Suspect]
     Active Substance: SILODOSIN
     Indication: PROSTATE CANCER
     Dosage: UNK
     Route: 065
  3. SIMVASTATIN. [Suspect]
     Active Substance: SIMVASTATIN
     Indication: HYPERCHOLESTEROLAEMIA
     Dosage: UNK
     Route: 065
  4. LEUPROLIDE ACETATE. [Suspect]
     Active Substance: LEUPROLIDE ACETATE
     Indication: PROSTATE CANCER
     Dosage: 3.75 MG, QMO FOR SEVERAL YEARS
     Route: 065
  5. LANSOPRAZOLE. [Suspect]
     Active Substance: LANSOPRAZOLE
     Indication: PRODUCT USED FOR UNKNOWN INDICATION
     Dosage: UNK
     Route: 065

REACTIONS (15)
  - Torsade de pointes [Recovered/Resolved]
  - Fatigue [Recovered/Resolved]
  - Electrocardiogram QT prolonged [Recovered/Resolved]
  - Aortic valve stenosis [Recovered/Resolved]
  - Pulmonary hypertension [Recovered/Resolved]
  - Dyspnoea [Recovered/Resolved]
  - Blood testosterone decreased [Unknown]
  - Right ventricular dilatation [Recovered/Resolved]
  - Mitral valve stenosis [Recovered/Resolved]
  - Off label use [Not Recovered/Not Resolved]
  - Left ventricular hypertrophy [Recovered/Resolved]
  - Atrioventricular block complete [Recovered/Resolved]
  - Pulmonary oedema [Recovered/Resolved]
  - Diastolic dysfunction [Recovered/Resolved]
  - Cardiac failure [Unknown]
